FAERS Safety Report 20365383 (Version 1)
Quarter: 2022Q1

REPORT INFORMATION
  Report Type: Spontaneous
  Country: US (occurrence: US)
  Receive Date: 20220122
  Receipt Date: 20220122
  Transmission Date: 20220423
  Serious: Yes (Other)
  Sender: FDA-Public Use
  Company Number: US-NOVARTISPH-NVSC2022US010112

PATIENT
  Sex: Female
  Weight: 83.91 kg

DRUGS (1)
  1. DIOVAN [Suspect]
     Active Substance: VALSARTAN
     Indication: Hypertension
     Dosage: 80 MG, QD (EVERY EVENING)
     Route: 065
     Dates: start: 20030601

REACTIONS (1)
  - Allergic reaction to excipient [Recovering/Resolving]
